FAERS Safety Report 4784212-3 (Version None)
Quarter: 2005Q3

REPORT INFORMATION
  Report Type: 
  Country: None (occurrence: None)
  Receive Date: 20050928
  Receipt Date: 20050914
  Transmission Date: 20060218
  Serious: Yes (Hospitalization)
  Sender: FDA-Public Use
  Company Number: 217799

PATIENT
  Age: 71 Year
  Sex: Female
  Weight: 78 kg

DRUGS (11)
  1. AVASTIN [Suspect]
     Indication: BREAST CANCER METASTATIC
     Dosage: 1200 MG, Q3W, INTRAVENOUS
     Route: 042
     Dates: start: 20050826, end: 20050826
  2. XELODA [Suspect]
     Indication: BREAST CANCER METASTATIC
     Dosage: 2000 MG, BID, ORAL
     Route: 048
     Dates: start: 20050826, end: 20050905
  3. AVALIDE [Concomitant]
  4. CRESTOR [Concomitant]
  5. NORVASC [Concomitant]
  6. VITAMIN B12 (CYANOCOBALKAMIN) [Concomitant]
  7. CALTRATE (CALCIUM CARBONATE) [Concomitant]
  8. ASPIRIN [Concomitant]
  9. PRILOSEC [Concomitant]
  10. DARVOCET-N 100 [Concomitant]
  11. TYLENOL ARTHRITIS (ACETAMINOPHEN) [Concomitant]

REACTIONS (9)
  - DIARRHOEA HAEMORRHAGIC [None]
  - EPISTAXIS [None]
  - HYPOCALCAEMIA [None]
  - MUCOSAL HAEMORRHAGE [None]
  - MUCOSAL INFLAMMATION [None]
  - PARAESTHESIA [None]
  - RENAL FAILURE [None]
  - VAGINAL HAEMORRHAGE [None]
  - VOMITING [None]
